FAERS Safety Report 18511153 (Version 1)
Quarter: 2020Q4

REPORT INFORMATION
  Report Type: Spontaneous
  Country: GB (occurrence: GB)
  Receive Date: 20201117
  Receipt Date: 20201117
  Transmission Date: 20210114
  Serious: Yes (Hospitalization, Other)
  Sender: FDA-Public Use
  Company Number: GB-009507513-2011GBR008723

PATIENT
  Age: 65 Year
  Sex: Female
  Weight: 63.5 kg

DRUGS (12)
  1. ROSUVASTATIN. [Concomitant]
     Active Substance: ROSUVASTATIN
  2. FELODIPINE. [Concomitant]
     Active Substance: FELODIPINE
  3. BUDESONIDE (+) FORMOTEROL FUMARATE [Concomitant]
     Active Substance: BUDESONIDE\FORMOTEROL FUMARATE
  4. INFLUENZA VIRUS [Concomitant]
     Active Substance: INFLUENZA VIRUS VACCINE
  5. LEVOTHYROXINE SODIUM. [Concomitant]
     Active Substance: LEVOTHYROXINE SODIUM
  6. INDAPAMIDE. [Concomitant]
     Active Substance: INDAPAMIDE
  7. ALBUTEROL. [Concomitant]
     Active Substance: ALBUTEROL
  8. ATORVASTATIN [Concomitant]
     Active Substance: ATORVASTATIN
  9. EMERADE [Concomitant]
     Active Substance: EPINEPHRINE BITARTRATE
     Indication: HYPERSENSITIVITY
  10. LISINOPRIL. [Suspect]
     Active Substance: LISINOPRIL
     Dosage: 20 MILLIGRAM
     Route: 048
     Dates: start: 20150617, end: 20160708
  11. MAXITROL [Concomitant]
     Active Substance: DEXAMETHASONE\NEOMYCIN SULFATE\POLYMYXIN B SULFATE
  12. CHLORPHENIRAMINE. [Concomitant]
     Active Substance: CHLORPHENIRAMINE

REACTIONS (2)
  - Swollen tongue [Recovered/Resolved with Sequelae]
  - Tongue pruritus [Recovered/Resolved with Sequelae]

NARRATIVE: CASE EVENT DATE: 20160708
